FAERS Safety Report 24544925 (Version 1)
Quarter: 2024Q4

REPORT INFORMATION
  Report Type: Spontaneous
  Country: BR (occurrence: BR)
  Receive Date: 20241024
  Receipt Date: 20241024
  Transmission Date: 20250114
  Serious: Yes (Disabling)
  Sender: CHEPLAPHARM
  Company Number: BR-CHEPLA-2024013484

PATIENT
  Age: 3 Year
  Sex: Female

DRUGS (1)
  1. CLONAZEPAM [Suspect]
     Active Substance: CLONAZEPAM
     Dosage: MAH REF 115240011
     Route: 048
     Dates: start: 20241016, end: 20241016

REACTIONS (4)
  - Motor dysfunction [Not Recovered/Not Resolved]
  - Agitation [Not Recovered/Not Resolved]
  - Fall [Not Recovered/Not Resolved]
  - Accidental exposure to product by child [Unknown]

NARRATIVE: CASE EVENT DATE: 20241016
